FAERS Safety Report 24967465 (Version 1)
Quarter: 2025Q1

REPORT INFORMATION
  Report Type: Spontaneous
  Country: DE (occurrence: DE)
  Receive Date: 20250214
  Receipt Date: 20250214
  Transmission Date: 20250408
  Serious: No
  Sender: ALKEM
  Company Number: DE-ALKEM LABORATORIES LIMITED-DE-ALKEM-2024-26022

PATIENT
  Age: 42 Year
  Sex: Female
  Weight: 105 kg

DRUGS (6)
  1. FINGOLIMOD [Suspect]
     Active Substance: FINGOLIMOD
     Indication: Relapsing multiple sclerosis
     Dosage: 0.5 MILLIGRAM, QD (EVERY 1 DAY)
     Route: 048
     Dates: start: 20210701
  2. BACLOFEN [Concomitant]
     Active Substance: BACLOFEN
     Indication: Product used for unknown indication
     Dosage: 10 MILLIGRAM, BID (EVERY 0.5 DAY)
     Route: 048
  3. HYGROTON [Concomitant]
     Active Substance: CHLORTHALIDONE
     Indication: Hypertension
     Dosage: 12.5 MILLIGRAM, QD (EVERY 1 DAY)
     Route: 048
  4. LEVOTHYROXINE SODIUM [Concomitant]
     Active Substance: LEVOTHYROXINE SODIUM
     Indication: Hypothyroidism
     Dosage: 1 DOSAGE FORM, QD (EVERY 1 DAY) (125/150 MICROGRAM)
     Route: 048
  5. LEVOTHYROXINE SODIUM [Concomitant]
     Active Substance: LEVOTHYROXINE SODIUM
     Route: 048
  6. RAMIPRIL [Concomitant]
     Active Substance: RAMIPRIL
     Indication: Hypertension
     Dosage: 5 MILLIGRAM, QD (EVERY 1 DAY)
     Route: 048

REACTIONS (1)
  - Genital infection fungal [Recovered/Resolved]

NARRATIVE: CASE EVENT DATE: 20240601
